FAERS Safety Report 15683948 (Version 3)
Quarter: 2023Q1

REPORT INFORMATION
  Report Type: Spontaneous
  Country: PT (occurrence: PT)
  Receive Date: 20181204
  Receipt Date: 20230225
  Transmission Date: 20230418
  Serious: Yes (Hospitalization, Other)
  Sender: FDA-Public Use
  Company Number: PT-AUROBINDO-AUR-APL-2018-058404

PATIENT
  Age: 82 Year
  Sex: Female

DRUGS (1)
  1. AMOXICILLIN\CLAVULANIC ACID [Suspect]
     Active Substance: AMOXICILLIN\CLAVULANIC ACID
     Indication: Product used for unknown indication
     Dosage: 1 UNK, TWO TIMES A DAY, 850 + 125 MG EVERY 12 HOURS
     Route: 065

REACTIONS (7)
  - Peripheral arterial occlusive disease [Recovering/Resolving]
  - Altered state of consciousness [Recovering/Resolving]
  - Acute kidney injury [Recovering/Resolving]
  - Dementia [Recovering/Resolving]
  - Sepsis [Recovering/Resolving]
  - Delirium [Recovered/Resolved]
  - Drug ineffective [Unknown]
